FAERS Safety Report 18150370 (Version 1)
Quarter: 2020Q3

REPORT INFORMATION
  Report Type: Spontaneous
  Country: US (occurrence: US)
  Receive Date: 20200814
  Receipt Date: 20200814
  Transmission Date: 20201103
  Serious: No
  Sender: FDA-Public Use
  Company Number: US-ASTRAZENECA-2020SE91572

PATIENT
  Sex: Male
  Weight: 77.1 kg

DRUGS (2)
  1. GLIPIZIDE. [Concomitant]
     Active Substance: GLIPIZIDE
     Dosage: HIGH DOSE
  2. BYDUREON BCISE [Suspect]
     Active Substance: EXENATIDE
     Indication: DRUG THERAPY
     Route: 058

REACTIONS (1)
  - Diabetes mellitus inadequate control [Unknown]
